FAERS Safety Report 20670359 (Version 1)
Quarter: 2022Q2

REPORT INFORMATION
  Report Type: Spontaneous
  Country: US (occurrence: US)
  Receive Date: 20220404
  Receipt Date: 20220404
  Transmission Date: 20220721
  Serious: Yes (Other)
  Sender: FDA-Public Use
  Company Number: US-TEVA-2022-US-2016632

PATIENT
  Age: 73 Year
  Sex: Male

DRUGS (1)
  1. BACLOFEN [Suspect]
     Active Substance: BACLOFEN
     Route: 065

REACTIONS (5)
  - Serotonin syndrome [Unknown]
  - Ataxia [Unknown]
  - Confusional state [Unknown]
  - Tremor [Unknown]
  - Chills [Unknown]
